FAERS Safety Report 7148551-3 (Version None)
Quarter: 2010Q4

REPORT INFORMATION
  Report Type: 
  Country: None (occurrence: None)
  Receive Date: 20101209
  Receipt Date: 20101201
  Transmission Date: 20110411
  Serious: Yes (Other)
  Sender: FDA-Public Use
  Company Number: IT-BRISTOL-MYERS SQUIBB COMPANY-15410707

PATIENT
  Age: 29 Year
  Sex: Female

DRUGS (2)
  1. TRAZODONE HCL [Suspect]
     Indication: ANXIETY
     Dosage: 25 MG TABS
  2. TRAZODONE HCL [Suspect]
     Indication: DEPRESSION
     Dosage: 25 MG TABS

REACTIONS (1)
  - DISTURBANCE IN SEXUAL AROUSAL [None]
